FAERS Safety Report 5116271-2 (Version None)
Quarter: 2006Q3

REPORT INFORMATION
  Report Type: 
  Country: None (occurrence: None)
  Receive Date: 20060925
  Receipt Date: 20060911
  Transmission Date: 20061208
  Serious: Yes (Hospitalization)
  Sender: FDA-Public Use
  Company Number: 2006PV020958

PATIENT
  Age: 49 Year
  Sex: Female
  Weight: 83.4619 kg

DRUGS (11)
  1. BYETTA [Suspect]
     Indication: DIABETES MELLITUS NON-INSULIN-DEPENDENT
     Dosage: 5 MCG; Q12HR; SC
     Route: 058
     Dates: start: 20060101, end: 20060711
  2. PREDNISONE TAB [Concomitant]
  3. NABUMETONE [Concomitant]
  4. ZOLOFT [Concomitant]
  5. ENALAPRIL MALEATE [Concomitant]
  6. TRAZODONE HCL [Concomitant]
  7. VICODIN [Concomitant]
  8. ACTOS [Concomitant]
  9. ALBUTEROL [Concomitant]
  10. ASCORBIC ACID [Concomitant]
  11. WOMEN'S ONE A DAY W/CALCIUM [Concomitant]

REACTIONS (8)
  - BODY TEMPERATURE INCREASED [None]
  - CELLULITIS [None]
  - IMPAIRED HEALING [None]
  - LIMB INJURY [None]
  - NEUTROPENIA [None]
  - OPEN WOUND [None]
  - SPLENOMEGALY [None]
  - VASCULITIS [None]
